FAERS Safety Report 24297229 (Version 1)
Quarter: 2024Q3

REPORT INFORMATION
  Report Type: Spontaneous
  Country: US (occurrence: US)
  Receive Date: 20240909
  Receipt Date: 20240909
  Transmission Date: 20241017
  Serious: No
  Sender: AMGEN
  Company Number: US-AMGEN-USASP2024178993

PATIENT
  Age: 57 Year
  Sex: Female

DRUGS (1)
  1. IMDELLTRA [Suspect]
     Active Substance: TARLATAMAB-DLLE
     Indication: Small cell lung cancer
     Dosage: 10 MILLIGRAM,  REQUESTED FOR REPLACEMENT: (1) 10 MG VIAL
     Route: 065

REACTIONS (2)
  - Intercepted product preparation error [Unknown]
  - Product label confusion [Unknown]

NARRATIVE: CASE EVENT DATE: 20240906
